FAERS Safety Report 17020463 (Version 1)
Quarter: 2019Q4

REPORT INFORMATION
  Report Type: Spontaneous
  Country: US (occurrence: US)
  Receive Date: 20191005
  Receipt Date: 20191005
  Transmission Date: 20200122
  Serious: Yes (Hospitalization)
  Sender: FDA-Public Use
  Company Number: None

PATIENT
  Age: 69 Year
  Sex: Male
  Weight: 89.4 kg

DRUGS (2)
  1. CASODEX [Suspect]
     Active Substance: BICALUTAMIDE
     Dates: end: 20171223
  2. LEUPROLIDE ACETATE. [Suspect]
     Active Substance: LEUPROLIDE ACETATE
     Dates: end: 20170626

REACTIONS (8)
  - Haematuria [None]
  - Urinary retention [None]
  - Anaemia [None]
  - Radiation injury [None]
  - Thrombosis [None]
  - Dyspnoea exertional [None]
  - Acute kidney injury [None]
  - Prostatic obstruction [None]

NARRATIVE: CASE EVENT DATE: 20190501
